FAERS Safety Report 18221836 (Version 1)
Quarter: 2020Q3

REPORT INFORMATION
  Report Type: Spontaneous
  Country: SE (occurrence: SE)
  Receive Date: 20200902
  Receipt Date: 20200902
  Transmission Date: 20201103
  Serious: Yes (Other)
  Sender: FDA-Public Use
  Company Number: SE-PFIZER INC-2020336877

PATIENT
  Age: 97 Year
  Sex: Male

DRUGS (3)
  1. LYRICA [Suspect]
     Active Substance: PREGABALIN
     Indication: DEPRESSION
     Dosage: 50 MG, DAILY (25 MG TWO CAPSULES PER DAY)
  2. ZOLOFT [Suspect]
     Active Substance: SERTRALINE HYDROCHLORIDE
     Indication: DEPRESSION
     Dosage: UNK (GIVEN IN THE EVENING)
  3. LYRICA [Suspect]
     Active Substance: PREGABALIN
     Indication: PRURITUS
     Dosage: 25 MG, DAILY
     Dates: end: 20200827

REACTIONS (9)
  - Fracture [Unknown]
  - Fall [Unknown]
  - COVID-19 [Unknown]
  - Product use in unapproved indication [Unknown]
  - Hallucinations, mixed [Unknown]
  - Stupor [Unknown]
  - Off label use [Unknown]
  - Urinary tract infection [Unknown]
  - Asthenia [Unknown]

NARRATIVE: CASE EVENT DATE: 202003
